FAERS Safety Report 16663664 (Version 1)
Quarter: 2019Q3

REPORT INFORMATION
  Report Type: Spontaneous
  Country: US (occurrence: US)
  Receive Date: 20190802
  Receipt Date: 20190802
  Transmission Date: 20191004
  Serious: Yes (Other)
  Sender: FDA-Public Use
  Company Number: US-FRESENIUS KABI-FK201908538

PATIENT
  Sex: Female

DRUGS (1)
  1. DOXORUBICIN (MANUFACTURER UNKNOWN) [Suspect]
     Active Substance: DOXORUBICIN
     Indication: SARCOMA
     Dosage: 375-450 MG/M2 OF DOXORUBICIN, GIVEN OVER A PERIOD OF APPROXIMATELY 6 MONTHS WITHIN EACH CYCLE, DOXOR
     Route: 042

REACTIONS (1)
  - Cardiac failure chronic [Unknown]
